FAERS Safety Report 6450782-2 (Version None)
Quarter: 2009Q4

REPORT INFORMATION
  Report Type: 
  Country: None (occurrence: None)
  Receive Date: 20091123
  Receipt Date: 20091117
  Transmission Date: 20100525
  Serious: Yes (Death, Other)
  Sender: FDA-Public Use
  Company Number: DE-CELGENEUS-062-21880-09100811

PATIENT
  Sex: Male
  Weight: 80 kg

DRUGS (2)
  1. REVLIMID [Suspect]
     Indication: PLASMACYTOMA
     Route: 048
     Dates: start: 20090806, end: 20090825
  2. DEXAMETHASONE [Suspect]
     Indication: PLASMACYTOMA
     Route: 065

REACTIONS (2)
  - CARDIOMEGALY [None]
  - PULMONARY EMBOLISM [None]
